FAERS Safety Report 12484953 (Version 1)
Quarter: 2016Q2

REPORT INFORMATION
  Report Type: Spontaneous
  Country: US (occurrence: None)
  Receive Date: 20160620
  Receipt Date: 20160620
  Transmission Date: 20160815
  Serious: Yes (Life-Threatening, Hospitalization, Disabling)
  Sender: FDA-Public Use
  Company Number: None

PATIENT
  Age: 24 Year
  Sex: Male
  Weight: 114.31 kg

DRUGS (9)
  1. XANAX [Concomitant]
     Active Substance: ALPRAZOLAM
  2. LAMICTAL [Concomitant]
     Active Substance: LAMOTRIGINE
  3. LITHIUM. [Concomitant]
     Active Substance: LITHIUM
  4. SEROQUEL [Suspect]
     Active Substance: QUETIAPINE FUMARATE
     Indication: BIPOLAR DISORDER
     Dosage: 4 TABLETS AT BED TIME
     Route: 048
     Dates: start: 20120613, end: 20160130
  5. RESPERIDONE [Concomitant]
     Active Substance: RISPERIDONE
  6. AMBIENT [Concomitant]
  7. LEVOTYROXINE [Concomitant]
  8. BUSPAR [Concomitant]
     Active Substance: BUSPIRONE HYDROCHLORIDE
  9. MELATONIN [Concomitant]
     Active Substance: MELATONIN

REACTIONS (12)
  - Thrombotic thrombocytopenic purpura [None]
  - Encephalopathy [None]
  - Sepsis [None]
  - Paranoia [None]
  - Suicidal behaviour [None]
  - Confusional state [None]
  - Seizure [None]
  - Staphylococcal infection [None]
  - Renal disorder [None]
  - Anxiety [None]
  - Aggression [None]
  - Jugular vein thrombosis [None]

NARRATIVE: CASE EVENT DATE: 20160130
